FAERS Safety Report 8033425 (Version 3)
Quarter: 2012Q4

REPORT INFORMATION
  Report Type: 
  Country: US (occurrence: US)
  Receive Date: 20110713
  Receipt Date: 20121210
  Transmission Date: 20130627
  Serious: Yes (Hospitalization)
  Sender: FDA-Public Use
  Company Number: US-JNJFOC-20110703365

PATIENT
  Age: 21 Year
  Sex: Male
  Weight: 63.9 kg

DRUGS (11)
  1. ACETAMINOPHEN [Suspect]
     Route: 048
  2. ACETAMINOPHEN [Suspect]
     Indication: PRODUCT USED FOR UNKNOWN INDICATION
     Dosage: 25 grams
     Route: 048
     Dates: start: 20070830
  3. BENADRYL [Suspect]
     Route: 048
  4. BENADRYL [Suspect]
     Indication: PRODUCT USED FOR UNKNOWN INDICATION
     Dosage: (9-10 tablets)
     Route: 048
     Dates: start: 20070830
  5. PENICILLIN [Suspect]
     Indication: PRODUCT USED FOR UNKNOWN INDICATION
     Route: 048
     Dates: start: 20070830
  6. UNISOM SLEEPTABS [Suspect]
     Indication: PRODUCT USED FOR UNKNOWN INDICATION
     Dosage: (9-10 tablets)
     Route: 048
     Dates: start: 20070830
  7. MULTIVITAMINS [Concomitant]
     Indication: PRODUCT USED FOR UNKNOWN INDICATION
     Route: 048
  8. KEPPRA [Concomitant]
     Indication: CONVULSION PROPHYLAXIS
     Dosage: 15
     Route: 048
  9. KEPPRA [Concomitant]
     Indication: CONVULSION PROPHYLAXIS
     Route: 048
  10. DILANTIN [Concomitant]
     Indication: CONVULSION
     Dosage: 15
     Route: 048
  11. DILANTIN [Concomitant]
     Indication: CONVULSION
     Dosage: 200 mg in am, 100 mg in afternoon, 200 mg

in pm
     Route: 048

REACTIONS (2)
  - Intentional overdose [Unknown]
  - Liver injury [Not Recovered/Not Resolved]
